FAERS Safety Report 17951414 (Version 1)
Quarter: 2020Q2

REPORT INFORMATION
  Report Type: Spontaneous
  Country: CA (occurrence: CA)
  Receive Date: 20200626
  Receipt Date: 20200626
  Transmission Date: 20200714
  Serious: Yes (Disabling)
  Sender: FDA-Public Use
  Company Number: NVSC2020CA180525

PATIENT
  Age: 78 Year
  Sex: Female
  Weight: 57 kg

DRUGS (1)
  1. PRAMIPEXOLE. [Suspect]
     Active Substance: PRAMIPEXOLE
     Indication: RESTLESS LEGS SYNDROME
     Dosage: 0.25 MG, QD
     Route: 048

REACTIONS (3)
  - Somnolence [Recovered/Resolved]
  - Confusional state [Recovered/Resolved]
  - Fatigue [Recovered/Resolved]
